FAERS Safety Report 7083793-7 (Version None)
Quarter: 2010Q4

REPORT INFORMATION
  Report Type: 
  Country: None (occurrence: None)
  Receive Date: 20101104
  Receipt Date: 20101026
  Transmission Date: 20110411
  Serious: Yes (Hospitalization)
  Sender: FDA-Public Use
  Company Number: US-ASTRAZENECA-2010SE50875

PATIENT
  Age: 53 Year
  Sex: Female

DRUGS (4)
  1. CRESTOR [Suspect]
     Route: 048
     Dates: start: 20100915, end: 20101024
  2. PROZAC [Concomitant]
  3. ASPIRIN [Concomitant]
  4. ZMAX [Concomitant]

REACTIONS (2)
  - ASTHENIA [None]
  - GALLBLADDER OPERATION [None]
